FAERS Safety Report 14859862 (Version 1)
Quarter: 2018Q2

REPORT INFORMATION
  Report Type: Spontaneous
  Country: US (occurrence: US)
  Receive Date: 20180508
  Receipt Date: 20180508
  Transmission Date: 20180711
  Serious: No
  Sender: FDA-Public Use
  Company Number: US-OTSUKA-2018_004659

PATIENT
  Sex: Female

DRUGS (1)
  1. ONZETRA [Suspect]
     Active Substance: SUMATRIPTAN SUCCINATE
     Indication: HEADACHE
     Dosage: 22 MG (1 NOSEPIECE IN EACH NOSTRIL)
     Route: 045
     Dates: start: 201802, end: 201802

REACTIONS (2)
  - Product use in unapproved indication [Unknown]
  - Product physical issue [Unknown]
